FAERS Safety Report 4357758-X (Version None)
Quarter: 2004Q2

REPORT INFORMATION
  Report Type: 
  Country: None (occurrence: None)
  Receive Date: 20040510
  Receipt Date: 20040504
  Transmission Date: 20050107
  Serious: Yes (Hospitalization)
  Sender: FDA-Public Use
  Company Number: 2004-05-0043

PATIENT
  Age: 43 Year
  Sex: Female

DRUGS (3)
  1. NASONEX [Suspect]
     Dosage: NASAL SPRAY
     Route: 045
     Dates: start: 20040402, end: 20040409
  2. BRONCHOKOD [Suspect]
     Dosage: ORAL
     Route: 048
     Dates: start: 20040402, end: 20040409
  3. PNEUMOREL [Suspect]
     Dosage: ORAL
     Route: 048
     Dates: start: 20040402, end: 20040409

REACTIONS (2)
  - PRURITUS [None]
  - RASH [None]
